FAERS Safety Report 24707037 (Version 5)
Quarter: 2025Q2

REPORT INFORMATION
  Report Type: Report from Study
  Country: JP (occurrence: JP)
  Receive Date: 20241206
  Receipt Date: 20250409
  Transmission Date: 20250717
  Serious: Yes (Hospitalization)
  Sender: PFIZER
  Company Number: JP-PFIZER INC-202400315826

PATIENT
  Age: 74 Year
  Sex: Female
  Weight: 39.1 kg

DRUGS (8)
  1. ELRANATAMAB [Suspect]
     Active Substance: ELRANATAMAB
     Indication: Plasma cell myeloma refractory
     Dosage: 76 MG, WEEKLY
     Route: 058
     Dates: start: 20241001, end: 20241126
  2. ESOMEPRAZOLE MAGNESIUM [Concomitant]
     Active Substance: ESOMEPRAZOLE MAGNESIUM
     Indication: Gastrooesophageal reflux disease
     Route: 048
     Dates: start: 20211029, end: 20241216
  3. FLUCONAZOLE [Concomitant]
     Active Substance: FLUCONAZOLE
     Indication: Infection prophylaxis
     Route: 048
     Dates: start: 20211101, end: 20241216
  4. ZOVIRAX [Concomitant]
     Active Substance: ACYCLOVIR
     Indication: Infection prophylaxis
     Route: 048
     Dates: start: 20211101, end: 20241216
  5. LEVOTHYROXINE [Concomitant]
     Active Substance: LEVOTHYROXINE
     Indication: Hypothyroidism
     Route: 048
     Dates: start: 20211119
  6. LENADEX [Concomitant]
     Active Substance: DEXAMETHASONE ACETATE
  7. DIPHENHYDRAMINE [Concomitant]
     Active Substance: DIPHENHYDRAMINE
  8. CALONAL [Concomitant]
     Active Substance: ACETAMINOPHEN

REACTIONS (1)
  - Immune effector cell-associated neurotoxicity syndrome [Recovering/Resolving]

NARRATIVE: CASE EVENT DATE: 20241119
